FAERS Safety Report 16384135 (Version 1)
Quarter: 2019Q2

REPORT INFORMATION
  Report Type: Spontaneous
  Country: US (occurrence: US)
  Receive Date: 20190603
  Receipt Date: 20190603
  Transmission Date: 20190711
  Serious: No
  Sender: FDA-Public Use
  Company Number: US-BAYER-2019-104577

PATIENT
  Sex: Female

DRUGS (3)
  1. NASACORT [Concomitant]
     Active Substance: TRIAMCINOLONE ACETONIDE
  2. CLARITIN LIQUI-GELS [Suspect]
     Active Substance: LORATADINE
     Indication: INFECTION
     Dosage: 1 DF, QD
     Route: 048
     Dates: start: 201812
  3. CLARITIN LIQUI-GELS [Suspect]
     Active Substance: LORATADINE
     Indication: SINUSITIS

REACTIONS (6)
  - Feeling abnormal [Unknown]
  - Asthenia [None]
  - Somnolence [Unknown]
  - Drug effective for unapproved indication [Unknown]
  - Depression [Unknown]
  - Sluggishness [Unknown]
